FAERS Safety Report 24644327 (Version 2)
Quarter: 2024Q4

REPORT INFORMATION
  Report Type: Report from Study
  Country: US (occurrence: US)
  Receive Date: 20241120
  Receipt Date: 20241211
  Transmission Date: 20250115
  Serious: Yes (Other)
  Sender: ABBVIE
  Company Number: US-ABBVIE-6005113

PATIENT
  Age: 65 Year
  Sex: Female

DRUGS (4)
  1. SKYRIZI [Suspect]
     Active Substance: RISANKIZUMAB-RZAA
     Indication: Crohn^s disease
     Dosage: WEEK 12?THEN EVERY 8 WEEKS THEREAFTER
     Route: 058
     Dates: start: 20240726
  2. SKYRIZI [Suspect]
     Active Substance: RISANKIZUMAB-RZAA
     Indication: Crohn^s disease
     Dosage: WEEK 0
     Route: 042
     Dates: start: 20240426, end: 20240426
  3. SKYRIZI [Suspect]
     Active Substance: RISANKIZUMAB-RZAA
     Indication: Crohn^s disease
     Dosage: WEEK 4
     Route: 042
     Dates: start: 20240531, end: 20240531
  4. SKYRIZI [Suspect]
     Active Substance: RISANKIZUMAB-RZAA
     Indication: Crohn^s disease
     Dosage: WEEK 8
     Route: 042
     Dates: start: 20240628, end: 20240628

REACTIONS (11)
  - Intestinal stenosis [Recovering/Resolving]
  - Intestinal obstruction [Recovered/Resolved]
  - Nausea [Unknown]
  - Decreased appetite [Unknown]
  - Arthralgia [Unknown]
  - Abdominal distension [Unknown]
  - Gastrointestinal sounds abnormal [Unknown]
  - Abdominal pain [Unknown]
  - Vomiting [Recovered/Resolved]
  - Arthralgia [Not Recovered/Not Resolved]
  - Injury [Not Recovered/Not Resolved]

NARRATIVE: CASE EVENT DATE: 20240101
